FAERS Safety Report 23740649 (Version 1)
Quarter: 2024Q2

REPORT INFORMATION
  Report Type: Spontaneous
  Country: US (occurrence: US)
  Receive Date: 20240415
  Receipt Date: 20240415
  Transmission Date: 20240716
  Serious: Yes (Hospitalization, Other)
  Sender: FDA-Public Use
  Company Number: US-APOTEX-2024AP004501

PATIENT
  Age: 68 Year
  Sex: Male

DRUGS (1)
  1. BICALUTAMIDE [Suspect]
     Active Substance: BICALUTAMIDE
     Indication: Prostate cancer
     Dosage: UNK
     Route: 065

REACTIONS (5)
  - Cardiac dysfunction [Recovered/Resolved]
  - Pain in extremity [Recovered/Resolved]
  - Ejection fraction decreased [Recovered/Resolved]
  - Dyspnoea [Recovered/Resolved]
  - Hypervolaemia [Recovered/Resolved]
